FAERS Safety Report 4789431-8 (Version None)
Quarter: 2005Q4

REPORT INFORMATION
  Report Type: 
  Country: None (occurrence: None)
  Receive Date: 20051004
  Receipt Date: 20050921
  Transmission Date: 20060501
  Serious: Yes (Hospitalization, Other)
  Sender: FDA-Public Use
  Company Number: 217576

PATIENT
  Age: 63 Year
  Sex: Male
  Weight: 65.8 kg

DRUGS (13)
  1. RITUXAN [Suspect]
     Indication: ACUTE LYMPHOCYTIC LEUKAEMIA
     Dosage: 375 MG, 1/WEEK, INTRAVENOUS
     Route: 042
     Dates: start: 20050504
  2. INSULIN [Concomitant]
  3. MAGNESIUM SULFATE [Concomitant]
  4. POTASSIUM (POTASSIUM NOS) [Concomitant]
  5. SENOKOT [Concomitant]
  6. TYLENOL (ACETAMINOPHEN) [Concomitant]
  7. BISACODYL [Concomitant]
  8. METOCLOPRAMIDE (METOCLOPRAMIDE HYDROCHLORIDE) [Concomitant]
  9. DIPHENHYDRAMINE (DIPHENHYDRAMINE NOS) [Concomitant]
  10. KYTRIL [Concomitant]
  11. HYDROCODONE BITARTRATE [Concomitant]
  12. LASIX [Concomitant]
  13. ITRACONAZOLE [Concomitant]

REACTIONS (1)
  - JAUNDICE CHOLESTATIC [None]
